FAERS Safety Report 11430728 (Version 1)
Quarter: 2015Q3

REPORT INFORMATION
  Report Type: Spontaneous
  Country: US (occurrence: US)
  Receive Date: 20150828
  Receipt Date: 20150828
  Transmission Date: 20151125
  Serious: No
  Sender: FDA-Public Use
  Company Number: PHEH2015US006987

PATIENT
  Sex: Female

DRUGS (2)
  1. LUPRON [Concomitant]
     Active Substance: LEUPROLIDE ACETATE
     Indication: PRODUCT USED FOR UNKNOWN INDICATION
     Dosage: 10 U, UNK
     Route: 065
  2. VIVELLE DOT [Suspect]
     Active Substance: ESTRADIOL
     Indication: INFERTILITY
     Dosage: 2 DF, UNK
     Route: 062

REACTIONS (3)
  - Application site pruritus [Unknown]
  - Incorrect dose administered [Unknown]
  - Product use issue [Unknown]
